FAERS Safety Report 5947720-5 (Version None)
Quarter: 2008Q4

REPORT INFORMATION
  Report Type: 
  Country: None (occurrence: None)
  Receive Date: 20081110
  Receipt Date: 20081110
  Transmission Date: 20090506
  Serious: Yes (Other)
  Sender: FDA-Public Use
  Company Number: None

PATIENT
  Sex: Female

DRUGS (1)
  1. LAMOTRIGINE [Suspect]
     Dosage: 300 MG QD PO
     Route: 048

REACTIONS (2)
  - CONVULSION [None]
  - TREATMENT FAILURE [None]
